FAERS Safety Report 6059198-4 (Version None)
Quarter: 2009Q1

REPORT INFORMATION
  Report Type: 
  Country: None (occurrence: None)
  Receive Date: 20090128
  Receipt Date: 20090122
  Transmission Date: 20090719
  Serious: Yes (Hospitalization)
  Sender: FDA-Public Use
  Company Number: GXKR2009DE01109

PATIENT
  Sex: Male

DRUGS (1)
  1. SIMVAHEXAL (NGX) (SIMVASTATIN) FILM-COATED TABLET, 40MG [Suspect]
     Indication: ANGIOPATHY
     Dosage: 40 MG, ORAL
     Route: 048

REACTIONS (4)
  - RENAL FAILURE ACUTE [None]
  - RESPIRATORY FAILURE [None]
  - RHABDOMYOLYSIS [None]
  - SEPSIS [None]
